FAERS Safety Report 9155188 (Version 2)
Quarter: 2013Q2

REPORT INFORMATION
  Report Type: Spontaneous
  Country: FR (occurrence: FR)
  Receive Date: 20130311
  Receipt Date: 20130524
  Transmission Date: 20140414
  Serious: Yes (Other)
  Sender: FDA-Public Use
  Company Number: FR-JNJFOC-20130301109

PATIENT
  Sex: Male
  Weight: 75 kg

DRUGS (7)
  1. XARELTO [Suspect]
     Indication: EMBOLISM VENOUS
     Route: 048
     Dates: start: 20130112, end: 20130129
  2. XARELTO [Suspect]
     Indication: PULMONARY EMBOLISM
     Route: 048
     Dates: start: 20130112, end: 20130129
  3. SINTROM [Concomitant]
     Route: 065
  4. PRESTOLE (HYDROCHLOROTHIAZIDE, TRIAMTERENE) [Concomitant]
     Route: 065
  5. ALLOPURINOL [Concomitant]
     Route: 065
  6. EZETROL [Concomitant]
     Route: 065
  7. XALATAN [Concomitant]
     Route: 065

REACTIONS (2)
  - Deep vein thrombosis [Recovering/Resolving]
  - Drug ineffective [Unknown]
